FAERS Safety Report 4860875-9 (Version None)
Quarter: 2005Q4

REPORT INFORMATION
  Report Type: 
  Country: None (occurrence: None)
  Receive Date: 20051216
  Receipt Date: 20051216
  Transmission Date: 20060501
  Serious: Yes (Hospitalization)
  Sender: FDA-Public Use
  Company Number: None

PATIENT
  Age: 36 Year
  Sex: Female
  Weight: 65 kg

DRUGS (2)
  1. AVASTIN [Suspect]
     Indication: BREAST CANCER METASTATIC
     Dosage: 10 MG/KG EVERY 2 WKS IV
     Route: 042
     Dates: start: 20050523, end: 20050922
  2. ARANESP [Suspect]
     Indication: ANAEMIA
     Dosage: 300 MG PRN SQ
     Route: 058
     Dates: start: 20051101

REACTIONS (7)
  - GRAND MAL CONVULSION [None]
  - HEADACHE [None]
  - HYPERTENSION [None]
  - PHONOPHOBIA [None]
  - PHOTOPHOBIA [None]
  - REVERSIBLE POSTERIOR LEUKOENCEPHALOPATHY SYNDROME [None]
  - VOMITING [None]
